FAERS Safety Report 6226430-3 (Version None)
Quarter: 2009Q2

REPORT INFORMATION
  Report Type: 
  Country: None (occurrence: None)
  Receive Date: 20090612
  Receipt Date: 20090515
  Transmission Date: 20091009
  Serious: No
  Sender: FDA-Public Use
  Company Number: US-ABBOTT-09P-163-0573863-00

PATIENT
  Sex: Male
  Weight: 77.18 kg

DRUGS (7)
  1. HUMIRA [Suspect]
     Indication: COLITIS ULCERATIVE
     Route: 058
     Dates: start: 20090401, end: 20090401
  2. HUMIRA [Suspect]
     Route: 058
     Dates: start: 20090401, end: 20090401
  3. HUMIRA [Suspect]
     Route: 058
     Dates: start: 20090401
  4. COZAAR [Concomitant]
     Indication: HYPERTENSION
  5. LIALDA [Concomitant]
     Indication: COLITIS ULCERATIVE
  6. PREDNISONE [Concomitant]
     Indication: COLITIS ULCERATIVE
  7. LEVOXYL [Concomitant]
     Indication: HYPOTHYROIDISM

REACTIONS (1)
  - INJECTION SITE IRRITATION [None]
